FAERS Safety Report 19353191 (Version 8)
Quarter: 2024Q3

REPORT INFORMATION
  Report Type: Report from Study
  Country: BR (occurrence: BR)
  Receive Date: 20210531
  Receipt Date: 20240913
  Transmission Date: 20241016
  Serious: Yes (Other)
  Sender: NOVARTIS
  Company Number: PHHY2018BR131344

PATIENT
  Sex: Female
  Weight: 60 kg

DRUGS (12)
  1. COSENTYX [Suspect]
     Active Substance: SECUKINUMAB
     Indication: Psoriatic arthropathy
     Dosage: UNK (DURING 5 WEEKS)
     Route: 065
     Dates: start: 2018
  2. COSENTYX [Suspect]
     Active Substance: SECUKINUMAB
     Indication: Psoriasis
     Dosage: 300 MG, QW (FOR 4 WEEKS)
     Route: 058
     Dates: start: 20180416
  3. COSENTYX [Suspect]
     Active Substance: SECUKINUMAB
     Dosage: 300 MG, QMO
     Route: 058
     Dates: start: 20190414
  4. COSENTYX [Suspect]
     Active Substance: SECUKINUMAB
     Dosage: 300 MG (2 AMPOULES), QMO
     Route: 065
  5. COSENTYX [Suspect]
     Active Substance: SECUKINUMAB
     Dosage: UNK
     Route: 065
     Dates: start: 20210615
  6. COSENTYX [Suspect]
     Active Substance: SECUKINUMAB
     Dosage: 150 MG
     Route: 065
  7. COSENTYX [Suspect]
     Active Substance: SECUKINUMAB
     Dosage: 2, UNK, QD
     Route: 065
  8. COSENTYX [Suspect]
     Active Substance: SECUKINUMAB
     Dosage: (2 PENS), QMO
     Route: 065
  9. CYCLOSPORINE [Suspect]
     Active Substance: CYCLOSPORINE
     Indication: Product used for unknown indication
     Dosage: 2, QD
     Route: 065
  10. METHOTREXATE [Suspect]
     Active Substance: METHOTREXATE
     Indication: Product used for unknown indication
     Dosage: UNK
     Route: 065
  11. NAPROXEN SODIUM [Suspect]
     Active Substance: NAPROXEN\NAPROXEN SODIUM
     Indication: Product used for unknown indication
     Dosage: 150 MG
     Route: 065
  12. FERRITIN [Concomitant]
     Active Substance: FERRITIN
     Indication: Product used for unknown indication
     Dosage: UNK
     Route: 065

REACTIONS (57)
  - Diabetes mellitus [Unknown]
  - Weight increased [Unknown]
  - Hyperthyroidism [Unknown]
  - Psoriasis [Recovering/Resolving]
  - Feeling abnormal [Recovering/Resolving]
  - Swelling [Unknown]
  - Hair colour changes [Unknown]
  - Gout [Unknown]
  - Influenza [Unknown]
  - Spinal pain [Unknown]
  - Pain in extremity [Recovered/Resolved]
  - Eczema [Unknown]
  - Insomnia [Unknown]
  - Headache [Unknown]
  - Heavy menstrual bleeding [Unknown]
  - Decreased immune responsiveness [Unknown]
  - Neck pain [Unknown]
  - Malaise [Unknown]
  - Asthenia [Unknown]
  - Serum ferritin decreased [Unknown]
  - Vitamin D decreased [Recovered/Resolved]
  - Otorrhoea [Not Recovered/Not Resolved]
  - Pain in extremity [Not Recovered/Not Resolved]
  - Impaired healing [Unknown]
  - Dry skin [Unknown]
  - Breath odour [Unknown]
  - Purulent discharge [Unknown]
  - Drooling [Unknown]
  - Ear injury [Not Recovered/Not Resolved]
  - Fall [Unknown]
  - Arthralgia [Not Recovered/Not Resolved]
  - Musculoskeletal discomfort [Not Recovered/Not Resolved]
  - Scratch [Unknown]
  - Tremor [Not Recovered/Not Resolved]
  - Ear discomfort [Not Recovered/Not Resolved]
  - Ear pain [Unknown]
  - Wound [Recovered/Resolved]
  - Dry skin [Recovered/Resolved]
  - Burning sensation [Unknown]
  - Psoriasis [Recovered/Resolved]
  - Blister [Unknown]
  - Blood cholesterol abnormal [Unknown]
  - Mobility decreased [Unknown]
  - Wound [Recovered/Resolved]
  - Skin haemorrhage [Unknown]
  - Tendonitis [Unknown]
  - Osteosclerosis [Unknown]
  - Wound [Unknown]
  - Drug ineffective [Not Recovered/Not Resolved]
  - Pain [Not Recovered/Not Resolved]
  - Fatigue [Not Recovered/Not Resolved]
  - Skin discolouration [Unknown]
  - Ill-defined disorder [Not Recovered/Not Resolved]
  - Onychoclasis [Not Recovered/Not Resolved]
  - Nervous system disorder [Not Recovered/Not Resolved]
  - Nausea [Unknown]
  - Hyperventilation [Unknown]

NARRATIVE: CASE EVENT DATE: 20180101
